FAERS Safety Report 20330568 (Version 1)
Quarter: 2022Q1

REPORT INFORMATION
  Report Type: Spontaneous
  Country: US (occurrence: US)
  Receive Date: 20220113
  Receipt Date: 20220113
  Transmission Date: 20220423
  Serious: Yes (Other)
  Sender: FDA-Public Use
  Company Number: US-AMGEN-USASP2022002283

PATIENT
  Age: 22 Year
  Sex: Female
  Weight: 81.633 kg

DRUGS (4)
  1. AIMOVIG [Interacting]
     Active Substance: ERENUMAB-AOOE
     Indication: Migraine
     Dosage: UNK
     Route: 065
  2. NURTEC ODT [Interacting]
     Active Substance: RIMEGEPANT SULFATE
     Indication: Migraine
     Dosage: 75 MILLIGRAM, EVERY OTHER DAY
     Route: 048
     Dates: start: 202109
  3. SUMATRIPTAN [Concomitant]
     Active Substance: SUMATRIPTAN
     Indication: Migraine
     Route: 065
  4. ACETAMINOPHEN\CAFFEINE [Concomitant]
     Active Substance: ACETAMINOPHEN\CAFFEINE
     Indication: Migraine
     Route: 065

REACTIONS (5)
  - Eye haemorrhage [Unknown]
  - Hypersensitivity [Unknown]
  - Medication overuse headache [Recovered/Resolved]
  - Drug interaction [Unknown]
  - Cough [Unknown]

NARRATIVE: CASE EVENT DATE: 20211101
